FAERS Safety Report 25340091 (Version 1)
Quarter: 2025Q2

REPORT INFORMATION
  Report Type: Spontaneous
  Country: US (occurrence: US)
  Receive Date: 20250521
  Receipt Date: 20250521
  Transmission Date: 20250717
  Serious: Yes (Other)
  Sender: JOHNSON AND JOHNSON
  Company Number: US-JNJFOC-20250516648

PATIENT
  Sex: Male

DRUGS (3)
  1. INVEGA [Suspect]
     Active Substance: PALIPERIDONE
     Indication: Schizophrenia
     Route: 030
  2. INVEGA [Suspect]
     Active Substance: PALIPERIDONE
  3. INVEGA [Suspect]
     Active Substance: PALIPERIDONE

REACTIONS (2)
  - Pancreatitis necrotising [Unknown]
  - Hypertriglyceridaemia [Unknown]
